FAERS Safety Report 12950857 (Version 2)
Quarter: 2016Q4

REPORT INFORMATION
  Report Type: Spontaneous
  Country: FR (occurrence: FR)
  Receive Date: 20161116
  Receipt Date: 20161122
  Transmission Date: 20170207
  Serious: Yes (Hospitalization)
  Sender: FDA-Public Use
  Company Number: FR-B.I. PHARMACEUTICALS,INC./RIDGEFIELD-2016-BI-074644

PATIENT
  Age: 37 Year
  Sex: Male

DRUGS (19)
  1. INEXIUM [Suspect]
     Active Substance: ESOMEPRAZOLE
     Indication: URINARY TRACT DISORDER
     Route: 048
     Dates: end: 20161001
  2. FOLIC ACID. [Suspect]
     Active Substance: FOLIC ACID
     Indication: VITAMIN SUPPLEMENTATION
     Route: 048
     Dates: end: 20161001
  3. FOLIC ACID. [Suspect]
     Active Substance: FOLIC ACID
     Route: 015
     Dates: start: 20161002
  4. MECIR [Suspect]
     Active Substance: TAMSULOSIN HYDROCHLORIDE
     Route: 048
     Dates: start: 20161002
  5. CANCIDAS [Suspect]
     Active Substance: CASPOFUNGIN ACETATE
     Indication: ASPERGILLUS INFECTION
     Route: 042
     Dates: start: 201607, end: 20161001
  6. CANCIDAS [Suspect]
     Active Substance: CASPOFUNGIN ACETATE
     Route: 042
     Dates: start: 20161007
  7. NOXAFIL [Suspect]
     Active Substance: POSACONAZOLE
     Indication: ASPERGILLUS INFECTION
     Route: 048
     Dates: end: 20161001
  8. ARAVA [Suspect]
     Active Substance: LEFLUNOMIDE
     Indication: SARCOIDOSIS
     Route: 048
     Dates: end: 20161001
  9. CORTANCYL [Suspect]
     Active Substance: PREDNISONE
     Indication: SARCOIDOSIS
     Route: 048
     Dates: end: 20161001
  10. BACTRIM [Suspect]
     Active Substance: SULFAMETHOXAZOLE\TRIMETHOPRIM
     Indication: ANTIBIOTIC THERAPY
     Route: 048
     Dates: end: 20161001
  11. MINITRAN [Suspect]
     Active Substance: NITROGLYCERIN
     Route: 048
     Dates: start: 20161002
  12. SERETIDE [Suspect]
     Active Substance: FLUTICASONE PROPIONATE\SALMETEROL XINAFOATE
     Dosage: STRENGTH AND UNIT DOSE: 250/50 MICROGRAMS/DOSE; DAILY DOSE: 500/100 MICROGRAM/DOSE
     Route: 055
     Dates: start: 20161002
  13. MECIR [Suspect]
     Active Substance: TAMSULOSIN HYDROCHLORIDE
     Indication: URINARY TRACT DISORDER
     Route: 048
     Dates: end: 20161001
  14. CORTANCYL [Suspect]
     Active Substance: PREDNISONE
     Route: 048
     Dates: start: 20161002
  15. BACTRIM [Suspect]
     Active Substance: SULFAMETHOXAZOLE\TRIMETHOPRIM
     Route: 048
     Dates: start: 20161002
  16. MINITRAN [Suspect]
     Active Substance: NITROGLYCERIN
     Indication: URINARY TRACT DISORDER
     Route: 048
     Dates: end: 20161001
  17. INEXIUM [Suspect]
     Active Substance: ESOMEPRAZOLE
     Route: 048
     Dates: start: 20161002
  18. SERETIDE [Suspect]
     Active Substance: FLUTICASONE PROPIONATE\SALMETEROL XINAFOATE
     Indication: PULMONARY SARCOIDOSIS
     Dosage: STRENGTH AND UNIT DOSE: 250/50 MICROGRAMS/DOSE; DAILY DOSE: 500/100 MICROGRAM/DOSE
     Route: 055
     Dates: end: 20161001
  19. ARAVA [Suspect]
     Active Substance: LEFLUNOMIDE
     Route: 048
     Dates: start: 20161002

REACTIONS (6)
  - Craniocerebral injury [Recovered/Resolved]
  - Loss of consciousness [Recovered/Resolved]
  - Paraesthesia [Recovered/Resolved]
  - Seizure [Recovered/Resolved]
  - Amaurosis [Recovered/Resolved]
  - Hemiplegia [Recovered/Resolved]

NARRATIVE: CASE EVENT DATE: 20161002
